FAERS Safety Report 12601641 (Version 2)
Quarter: 2016Q4

REPORT INFORMATION
  Report Type: Spontaneous
  Country: FR (occurrence: FR)
  Receive Date: 20160728
  Receipt Date: 20161014
  Transmission Date: 20170207
  Serious: Yes (Other)
  Sender: FDA-Public Use
  Company Number: FR-009507513-1607FRA010939

PATIENT
  Sex: Female
  Weight: 45 kg

DRUGS (4)
  1. ULTIVA [Concomitant]
     Active Substance: REMIFENTANIL HYDROCHLORIDE
     Indication: GENERAL ANAESTHESIA
  2. BRIDION [Suspect]
     Active Substance: SUGAMMADEX
     Indication: NEUROMUSCULAR BLOCKADE REVERSAL
     Dosage: 500 MG, UNK
     Route: 042
     Dates: start: 20160604
  3. NOREPINEPHRINE [Concomitant]
     Active Substance: NOREPINEPHRINE\NOREPINEPHRINE BITARTRATE
     Indication: SHOCK HAEMORRHAGIC
     Dosage: 1 MG / HOUR
     Route: 042
     Dates: start: 20160604, end: 20160604
  4. SEVORANE [Concomitant]
     Active Substance: SEVOFLURANE
     Indication: GENERAL ANAESTHESIA

REACTIONS (1)
  - Ventricular extrasystoles [Recovered/Resolved]

NARRATIVE: CASE EVENT DATE: 20160604
